FAERS Safety Report 4495543-9 (Version None)
Quarter: 2004Q4

REPORT INFORMATION
  Report Type: 
  Country: None (occurrence: None)
  Receive Date: 20041104
  Receipt Date: 20041021
  Transmission Date: 20050328
  Serious: Yes (Hospitalization)
  Sender: FDA-Public Use
  Company Number: GB-JNJFOC-20041006215

PATIENT
  Sex: Female

DRUGS (11)
  1. REMICADE [Suspect]
     Indication: RHEUMATOID ARTHRITIS
     Dosage: START DATE 11-OCT-2002.
     Route: 042
  2. ALENDRONATE SODIUM [Concomitant]
  3. METFORMIN [Concomitant]
  4. FERROUS SULFATE TAB [Concomitant]
  5. ADALAT [Concomitant]
  6. OMEPRAZOLE [Concomitant]
  7. PREDNISOLONE [Concomitant]
  8. CALCICHEW [Concomitant]
  9. RAMIPRIL [Concomitant]
  10. METHOTREXATE [Concomitant]
  11. FOLIC ACID [Concomitant]

REACTIONS (2)
  - ASTHENIA [None]
  - PAIN [None]
